FAERS Safety Report 5644425-5 (Version None)
Quarter: 2008Q1

REPORT INFORMATION
  Report Type: 
  Country: None (occurrence: None)
  Receive Date: 20080229
  Receipt Date: 20080219
  Transmission Date: 20080703
  Serious: Yes (Hospitalization, Other)
  Sender: FDA-Public Use
  Company Number: US-ELI_LILLY_AND_COMPANY-US200802004540

PATIENT
  Sex: Male

DRUGS (2)
  1. HUMALOG [Suspect]
     Dosage: 25 U, UNK
  2. HUMALOG [Suspect]
     Dosage: 50 U, UNK
     Dates: start: 20080219, end: 20080219

REACTIONS (4)
  - BLOOD GLUCOSE INCREASED [None]
  - CEREBROVASCULAR ACCIDENT [None]
  - COMA [None]
  - MEMORY IMPAIRMENT [None]
